FAERS Safety Report 5113822-9 (Version None)
Quarter: 2006Q3

REPORT INFORMATION
  Report Type: 
  Country: None (occurrence: None)
  Receive Date: 20060920
  Receipt Date: 20060905
  Transmission Date: 20061208
  Serious: Yes (Hospitalization)
  Sender: FDA-Public Use
  Company Number: IN200609001299

PATIENT
  Age: 50 Year
  Sex: Male

DRUGS (2)
  1. GEMCITE (GEMCITABINE HYDROCHLORIDE) [Suspect]
     Indication: PANCREATIC CARCINOMA
     Dosage: 1.6 G, OTHER, INTRAPLEURAL
     Route: 034
     Dates: end: 20060801
  2. PLATINUM COMPOUNDS [Concomitant]

REACTIONS (2)
  - BLOOD BILIRUBIN INCREASED [None]
  - JAUNDICE [None]
